FAERS Safety Report 6531549-3 (Version None)
Quarter: 2010Q1

REPORT INFORMATION
  Report Type: 
  Country: None (occurrence: None)
  Receive Date: 20100108
  Receipt Date: 20091211
  Transmission Date: 20100710
  Serious: Yes (Disabling)
  Sender: FDA-Public Use
  Company Number: US-ASTRAZENECA-2009SE31396

PATIENT
  Age: 52 Year
  Sex: Female

DRUGS (3)
  1. CRESTOR [Suspect]
     Route: 048
     Dates: end: 20091205
  2. DIOVAN [Concomitant]
     Dosage: 160/12.5
  3. PREMARIN [Concomitant]

REACTIONS (3)
  - ARTHRALGIA [None]
  - FIBROMYALGIA [None]
  - MYALGIA [None]
